FAERS Safety Report 21248119 (Version 1)
Quarter: 2022Q3

REPORT INFORMATION
  Report Type: Spontaneous
  Country: US (occurrence: US)
  Receive Date: 20220824
  Receipt Date: 20220824
  Transmission Date: 20221026
  Serious: Yes (Other)
  Sender: FDA-Public Use
  Company Number: US-GSKCCFUS-Case-01115074_AE-65679

PATIENT

DRUGS (1)
  1. ZEJULA [Suspect]
     Active Substance: NIRAPARIB
     Indication: Ovarian cancer recurrent
     Dosage: 2 DF, QD
     Route: 048
     Dates: start: 2020

REACTIONS (12)
  - Cataract [Not Recovered/Not Resolved]
  - Throat irritation [Not Recovered/Not Resolved]
  - Malaise [Recovering/Resolving]
  - Decreased activity [Unknown]
  - Asthenia [Recovering/Resolving]
  - Fatigue [Recovering/Resolving]
  - Nausea [Recovering/Resolving]
  - Headache [Recovered/Resolved]
  - Keratopathy [Unknown]
  - Aneurysm [Unknown]
  - Hypertension [Unknown]
  - Product complaint [Unknown]

NARRATIVE: CASE EVENT DATE: 20200101
